FAERS Safety Report 11617275 (Version 2)
Quarter: 2016Q4

REPORT INFORMATION
  Report Type: Report from Study
  Country: US (occurrence: US)
  Receive Date: 20151009
  Receipt Date: 20161205
  Transmission Date: 20170206
  Serious: Yes (Other)
  Sender: FDA-Public Use
  Company Number: US-JNJFOC-20151005237

PATIENT
  Age: 64 Year
  Sex: Male

DRUGS (3)
  1. IMBRUVICA [Suspect]
     Active Substance: IBRUTINIB
     Indication: CHRONIC LYMPHOCYTIC LEUKAEMIA
     Route: 048
     Dates: start: 20141112
  2. ALLOPURINOL. [Concomitant]
     Active Substance: ALLOPURINOL
  3. IMBRUVICA [Suspect]
     Active Substance: IBRUTINIB
     Indication: CHRONIC LYMPHOCYTIC LEUKAEMIA
     Route: 048
     Dates: start: 20141029

REACTIONS (11)
  - Platelet count decreased [Unknown]
  - Bone pain [Unknown]
  - Squamous cell carcinoma [Unknown]
  - Weight increased [Unknown]
  - Retinal tear [Recovered/Resolved]
  - Myalgia [Unknown]
  - Lymphocyte count increased [Unknown]
  - Tendonitis [Unknown]
  - Atrial fibrillation [Recovered/Resolved]
  - Hypertension [Not Recovered/Not Resolved]
  - Palpitations [Recovered/Resolved]

NARRATIVE: CASE EVENT DATE: 201509
